FAERS Safety Report 7219650-2 (Version None)
Quarter: 2011Q1

REPORT INFORMATION
  Report Type: 
  Country: None (occurrence: None)
  Receive Date: 20110103
  Receipt Date: 20101217
  Transmission Date: 20110831
  Serious: Yes (Hospitalization)
  Sender: FDA-Public Use
  Company Number: UTC-003485

PATIENT
  Age: 66 Year
  Sex: Male
  Weight: 98.2 kg

DRUGS (3)
  1. TYVASO [Suspect]
  2. TYVASO [Suspect]
     Indication: PULMONARY ARTERIAL HYPERTENSION
     Dosage: 288 MCG (72 MCG, 4 IN 1 D, INHALATION
     Route: 055
     Dates: start: 20101005
  3. DIURETICS (DIURETICS) [Concomitant]

REACTIONS (2)
  - RENAL FAILURE [None]
  - OEDEMA PERIPHERAL [None]
